FAERS Safety Report 15325429 (Version 2)
Quarter: 2018Q3

REPORT INFORMATION
  Report Type: Spontaneous
  Country: BR (occurrence: BR)
  Receive Date: 20180828
  Receipt Date: 20180910
  Transmission Date: 20181010
  Serious: Yes (Hospitalization)
  Sender: FDA-Public Use
  Company Number: BR-SA-2018SA225423

PATIENT
  Sex: Female
  Weight: 64 kg

DRUGS (3)
  1. CLEXANE SYRINGES [Suspect]
     Active Substance: ENOXAPARIN SODIUM
     Indication: HYPERCOAGULATION
     Dosage: UNK UNK, QD
     Route: 030
     Dates: start: 201804
  2. INIBINA [Concomitant]
     Indication: UTERINE HYPOTONUS
     Dosage: 3 DF, QD
     Route: 048
     Dates: start: 201807
  3. UTROGESTAN [Concomitant]
     Active Substance: PROGESTERONE
     Indication: PROGESTERONE
     Dosage: 2 DF, QD
     Route: 048
     Dates: start: 201804

REACTIONS (3)
  - Exposure during pregnancy [Unknown]
  - Uterine operation [Unknown]
  - Product use issue [Unknown]
